FAERS Safety Report 4828532-2 (Version None)
Quarter: 2005Q4

REPORT INFORMATION
  Report Type: 
  Country: None (occurrence: None)
  Receive Date: 20051110
  Receipt Date: 20051028
  Transmission Date: 20060501
  Serious: Yes (Life-Threatening, Hospitalization)
  Sender: FDA-Public Use
  Company Number: B0069147A

PATIENT
  Age: 44 Year
  Sex: Female

DRUGS (3)
  1. LAMICTAL [Suspect]
     Indication: EPILEPSY
     Dosage: 1 TABLET / THREE TIMES PER DAY
     Dates: start: 19990601
  2. VALPROIC ACID [Suspect]
     Dosage: 500 MG / TWICE PER DAY
     Dates: end: 19990601
  3. CLORAZEPATE DIPOTASSIUM [Concomitant]

REACTIONS (8)
  - ALCOHOL POISONING [None]
  - COGNITIVE DETERIORATION [None]
  - DERMATITIS ALLERGIC [None]
  - NEUTROPENIA [None]
  - PHOTOSENSITIVITY REACTION [None]
  - PYREXIA [None]
  - TOXIC EPIDERMAL NECROLYSIS [None]
  - URTICARIA [None]
